FAERS Safety Report 5317224-1 (Version None)
Quarter: 2007Q2

REPORT INFORMATION
  Report Type: 
  Country: None (occurrence: None)
  Receive Date: 20070504
  Receipt Date: 20070427
  Transmission Date: 20071010
  Serious: Yes (Hospitalization)
  Sender: FDA-Public Use
  Company Number: IT-PFIZER INC-2007032189

PATIENT
  Sex: Male

DRUGS (8)
  1. SUTENT [Suspect]
     Indication: METASTASES TO BONE
     Route: 048
     Dates: start: 20061001, end: 20061031
  2. PROCAPTAN [Concomitant]
  3. FLUOXETINE [Concomitant]
  4. CONCOR [Concomitant]
  5. DURAGESIC-100 [Concomitant]
     Dosage: TEXT:50 MCG
     Route: 062
  6. ALLOPURINOL [Concomitant]
  7. STILNOX [Concomitant]
  8. LIMPIDEX [Concomitant]

REACTIONS (1)
  - HEPATITIS [None]
